FAERS Safety Report 25146660 (Version 2)
Quarter: 2025Q2

REPORT INFORMATION
  Report Type: Spontaneous
  Country: PL (occurrence: PL)
  Receive Date: 20250401
  Receipt Date: 20250604
  Transmission Date: 20250717
  Serious: Yes (Hospitalization)
  Sender: SANDOZ
  Company Number: PL-ORESUND-25OPAJY0174P

PATIENT
  Age: 63 Year
  Sex: Male

DRUGS (4)
  1. CORTICOSTEROID NOS [Suspect]
     Active Substance: CORTICOSTEROID NOS
     Indication: Sarcoidosis
     Route: 065
  2. METHOTREXATE [Suspect]
     Active Substance: METHOTREXATE
     Indication: Sarcoidosis
     Route: 065
  3. MYCOPHENOLATE MOFETIL [Suspect]
     Active Substance: MYCOPHENOLATE MOFETIL
     Indication: Sarcoidosis
     Route: 065
  4. NINTEDANIB [Suspect]
     Active Substance: NINTEDANIB
     Indication: Sarcoidosis
     Route: 065

REACTIONS (4)
  - Lung transplant [Unknown]
  - Disease progression [Unknown]
  - Drug ineffective [Unknown]
  - Off label use [Unknown]
